FAERS Safety Report 5047059-9 (Version None)
Quarter: 2006Q3

REPORT INFORMATION
  Report Type: 
  Country: None (occurrence: None)
  Receive Date: 20060703
  Receipt Date: 20060622
  Transmission Date: 20061208
  Serious: Yes (Other)
  Sender: FDA-Public Use
  Company Number: 2006078938

PATIENT
  Age: 70 Year
  Sex: Male
  Weight: 107.5025 kg

DRUGS (15)
  1. BEXTRA [Suspect]
     Indication: LIMB INJURY
  2. BEXTRA [Suspect]
     Indication: ROTATOR CUFF SYNDROME
  3. VITAMINS (VITAMINS) [Concomitant]
  4. PREVACID [Concomitant]
  5. OMEGA 3 (FISH OIL) [Concomitant]
  6. ZYRTEC [Concomitant]
  7. LOTENSIN [Concomitant]
  8. VERAPAMIL [Concomitant]
  9. ASPIRIN [Concomitant]
  10. ATENOLOL [Concomitant]
  11. MAGNESIUM OXIDE (MAGNESIUM OXIDE) [Concomitant]
  12. FOLIC ACID [Concomitant]
  13. LIPITOR [Concomitant]
  14. ACTOS [Concomitant]
  15. PLAVIX [Concomitant]

REACTIONS (5)
  - BLISTER [None]
  - FALL [None]
  - LIMB INJURY [None]
  - RASH [None]
  - SKIN EXFOLIATION [None]
